FAERS Safety Report 7328945-3 (Version None)
Quarter: 2011Q1

REPORT INFORMATION
  Report Type: 
  Country: None (occurrence: None)
  Receive Date: 20110303
  Receipt Date: 20110223
  Transmission Date: 20110831
  Serious: Yes (Other)
  Sender: FDA-Public Use
  Company Number: JP-BAXTER-2011BH004491

PATIENT
  Age: 34 Year
  Sex: Male
  Weight: 50 kg

DRUGS (3)
  1. FEIBA [Suspect]
     Route: 042
     Dates: start: 20110122, end: 20110124
  2. NOVOSEVEN [Concomitant]
     Indication: HAEMOSTASIS
     Route: 042
     Dates: start: 20100101, end: 20110121
  3. FEIBA [Suspect]
     Indication: HAEMOSTASIS
     Route: 042
     Dates: start: 20110121, end: 20110121

REACTIONS (1)
  - FACTOR VIII INHIBITION [None]
